FAERS Safety Report 4699785-9 (Version None)
Quarter: 2005Q2

REPORT INFORMATION
  Report Type: 
  Country: None (occurrence: None)
  Receive Date: 20050623
  Receipt Date: 20050610
  Transmission Date: 20051028
  Serious: Yes (Other)
  Sender: FDA-Public Use
  Company Number: 2005087863

PATIENT
  Age: 70 Year
  Sex: Male
  Weight: 113.3993 kg

DRUGS (7)
  1. CELEBREX [Suspect]
     Indication: OSTEOARTHRITIS
     Dosage: 200 MG (200 MG, 1 IN 1 D), ORAL
     Route: 048
  2. MOTRIN [Suspect]
     Indication: OSTEOARTHRITIS
     Dosage: INTEVRAL: EVERY DAY, ORAL
     Route: 048
  3. BEXTRA [Suspect]
     Indication: OSTEOARTHRITIS
     Dosage: 20 MG (20 MG, 1 IN 1 D), ORAL
     Route: 048
  4. ALLOPURINOL [Concomitant]
  5. TYLENOL [Concomitant]
  6. ASPIRIN [Concomitant]
  7. STOOL SOFTENER (DOCUSATE SODIUM) [Concomitant]

REACTIONS (5)
  - DRUG EFFECT DECREASED [None]
  - JOINT STABILISATION [None]
  - MOVEMENT DISORDER [None]
  - PAIN [None]
  - SPINAL DISORDER [None]
